FAERS Safety Report 10371470 (Version 1)
Quarter: 2014Q1

REPORT INFORMATION
  Report Type: Spontaneous
  Country: US (occurrence: None)
  Receive Date: 20140306
  Receipt Date: 20140306
  Transmission Date: 20141002
  Serious: Yes (Hospitalization)
  Sender: FDA-Public Use
  Company Number: 163-21880-13010441

PATIENT
  Age: 79 Year
  Sex: Male

DRUGS (9)
  1. REVLIMID (LENALIDOMIDE) (CAPSULES) [Suspect]
     Indication: PLASMA CELL MYELOMA
     Dosage: 15 MG, 21 IN 21 D, PO
     Route: 048
     Dates: start: 20120110
  2. ASPIRIN (ACETYLSALICYLIC ACID) (UNKNOWN) (ACETYLSALICYLIC ACID) [Concomitant]
  3. CITALOPRAM HYDROBROMIDE (CITALOPRAM HYDROBROMIDE) (UNKNOWN) [Concomitant]
  4. EXFORGE HCT (DIOVAN TRIPLE) (UNKNOWN) [Concomitant]
  5. FLECAINIDE ACETATE (FLECAINIDE ACETATE) (UNKNOWN) [Concomitant]
  6. PLAVIX (CLOPIDOGREL SULFATE) (UNKNOWN) [Concomitant]
  7. VITAMIN B12 (CYANOCOBALAMIN) (UNKNOWN) [Concomitant]
  8. XARELTO (RIVAROXABAN) (UNKNOWN) [Concomitant]
  9. FOLIC ACID (FOLIC ACID) (UNKNOWN) [Concomitant]

REACTIONS (1)
  - Thrombosis [None]
